FAERS Safety Report 9025294 (Version 1)
Quarter: 2013Q1

REPORT INFORMATION
  Report Type: Spontaneous
  Country: CA (occurrence: CA)
  Receive Date: 20130122
  Receipt Date: 20130122
  Transmission Date: 20140127
  Serious: Yes (Other)
  Sender: FDA-Public Use
  Company Number: CA-B.I. PHARMACEUTICALS,INC./RIDGEFIELD-2013-CN-00101CN

PATIENT
  Age: 70 Year
  Sex: Male
  Weight: 89.35 kg

DRUGS (5)
  1. PRADAX [Suspect]
     Dosage: 300 MG
     Route: 048
  2. ASPIRIN [Concomitant]
  3. CADUET [Concomitant]
  4. SPIRIVA [Concomitant]
  5. SYMBICORT 200 TURBUHALER [Concomitant]

REACTIONS (3)
  - Leukocytoclastic vasculitis [Unknown]
  - Pain of skin [Unknown]
  - Vasculitic rash [Unknown]
